FAERS Safety Report 22090186 (Version 1)
Quarter: 2023Q1

REPORT INFORMATION
  Report Type: Spontaneous
  Country: US (occurrence: None)
  Receive Date: 20230313
  Receipt Date: 20230313
  Transmission Date: 20230418
  Serious: Yes (Hospitalization)
  Sender: FDA-Public Use
  Company Number: None

PATIENT
  Age: 44 Year
  Sex: Female
  Weight: 54 kg

DRUGS (1)
  1. JUNEL 1/20 [Suspect]
     Active Substance: ETHINYL ESTRADIOL\NORETHINDRONE ACETATE
     Indication: Osteoporosis postmenopausal
     Dosage: OTHER QUANTITY : 21 TABLET(S);?FREQUENCY : AT BEDTIME;?
     Route: 048
     Dates: start: 20210802, end: 20230306

REACTIONS (2)
  - Pulmonary embolism [None]
  - Blood pressure abnormal [None]

NARRATIVE: CASE EVENT DATE: 20230303
